FAERS Safety Report 5359097-7 (Version None)
Quarter: 2007Q2

REPORT INFORMATION
  Report Type: 
  Country: None (occurrence: None)
  Receive Date: 20070615
  Receipt Date: 20070608
  Transmission Date: 20071010
  Serious: Yes (Hospitalization)
  Sender: FDA-Public Use
  Company Number: US-BRISTOL-MYERS SQUIBB COMPANY-13808589

PATIENT
  Age: 52 Year
  Sex: Male
  Weight: 93 kg

DRUGS (6)
  1. CISPLATIN [Suspect]
     Indication: OROPHARYNGEAL CANCER STAGE UNSPECIFIED
     Route: 042
     Dates: start: 20070521, end: 20070521
  2. RADIATION THERAPY [Suspect]
     Indication: OROPHARYNGEAL CANCER STAGE UNSPECIFIED
     Dates: start: 20070521
  3. XANAX [Concomitant]
     Route: 048
  4. XANAX [Concomitant]
     Dosage: 25 MG, 2-3 PO TWICE PER DAY
     Route: 048
  5. DILAUDID [Concomitant]
     Indication: PAIN
     Dosage: 4 MG, 3-5 PILLS EVERY 4 HOURS
     Route: 048
  6. COMPAZINE [Concomitant]
     Indication: NAUSEA

REACTIONS (5)
  - FEBRILE NEUTROPENIA [None]
  - HAEMOGLOBIN [None]
  - NEUTROPHIL COUNT [None]
  - PLATELET COUNT [None]
  - WHITE BLOOD CELL COUNT DECREASED [None]
